FAERS Safety Report 9984195 (Version 1)
Quarter: 2014Q1

REPORT INFORMATION
  Report Type: Spontaneous
  Country: US (occurrence: US)
  Receive Date: 20140307
  Receipt Date: 20140307
  Transmission Date: 20141002
  Serious: No
  Sender: FDA-Public Use
  Company Number: US-ABBVIE-13P-163-1182717-00

PATIENT
  Age: 59 Year
  Sex: Female
  Weight: 93.07 kg

DRUGS (15)
  1. HUMIRA [Suspect]
     Indication: CROHN^S DISEASE
     Dosage: ONE DOSE
     Dates: start: 20130725, end: 20130725
  2. HUMIRA [Suspect]
     Indication: COLITIS ULCERATIVE
     Dosage: ONE DOSE
     Dates: start: 20130808, end: 20130808
  3. HUMIRA [Suspect]
     Dates: start: 20130822
  4. HUMALOG [Concomitant]
     Indication: TYPE 1 DIABETES MELLITUS
  5. LEVEMIR [Concomitant]
     Indication: TYPE 1 DIABETES MELLITUS
  6. LEVOTHYROXINE [Concomitant]
     Indication: HYPOTHYROIDISM
  7. LEVOTHYROXINE [Concomitant]
     Indication: GOITRE
  8. MULTIVITAMIN [Concomitant]
     Indication: VITAMIN SUPPLEMENTATION
  9. VITAMIN E [Concomitant]
     Indication: VITAMIN SUPPLEMENTATION
  10. VITAMIN C [Concomitant]
     Indication: VITAMIN SUPPLEMENTATION
  11. ASPIRIN [Concomitant]
     Indication: CARDIOVASCULAR EVENT PROPHYLAXIS
  12. FLAXSEED OIL [Concomitant]
     Indication: SUPPLEMENTATION THERAPY
  13. PROBIOTICS [Concomitant]
     Indication: SUPPLEMENTATION THERAPY
  14. KRILL OIL [Concomitant]
     Indication: SUPPLEMENTATION THERAPY
  15. MELATONIN [Concomitant]
     Indication: INSOMNIA

REACTIONS (1)
  - Wrong technique in drug usage process [Not Recovered/Not Resolved]
